APPROVED DRUG PRODUCT: OLMESARTAN MEDOXOMIL AND HYDROCHLOROTHIAZIDE
Active Ingredient: HYDROCHLOROTHIAZIDE; OLMESARTAN MEDOXOMIL
Strength: 12.5MG;20MG
Dosage Form/Route: TABLET;ORAL
Application: A208847 | Product #001 | TE Code: AB
Applicant: UMEDICA LABORATORIES PRIVATE LTD
Approved: Sep 17, 2019 | RLD: No | RS: No | Type: RX